FAERS Safety Report 25037154 (Version 4)
Quarter: 2025Q4

REPORT INFORMATION
  Report Type: Spontaneous
  Country: JP (occurrence: JP)
  Receive Date: 20250304
  Receipt Date: 20251028
  Transmission Date: 20260118
  Serious: Yes (Hospitalization, Other)
  Sender: AMGEN
  Company Number: JP-DSJP-DS-2025-123369-

PATIENT
  Age: 79 Year
  Sex: Male

DRUGS (11)
  1. BEVACIZUMAB [Suspect]
     Active Substance: BEVACIZUMAB
     Indication: Rectosigmoid cancer
     Dosage: UNK, 3 COURSES
     Route: 065
  2. BEVACIZUMAB [Suspect]
     Active Substance: BEVACIZUMAB
     Indication: Rectal cancer stage IV
  3. PRAVASTATIN SODIUM [Suspect]
     Active Substance: PRAVASTATIN SODIUM
     Indication: Product used for unknown indication
     Dosage: UNK
     Route: 065
  4. CAPECITABINE [Suspect]
     Active Substance: CAPECITABINE
     Indication: Product used for unknown indication
     Dosage: UNK
     Route: 065
  5. OXALIPLATIN [Suspect]
     Active Substance: OXALIPLATIN
     Indication: Product used for unknown indication
     Dosage: UNK
     Route: 065
  6. FEBUXOSTAT [Concomitant]
     Active Substance: FEBUXOSTAT
     Route: 065
  7. AMLODIPINE BESYLATE [Concomitant]
     Active Substance: AMLODIPINE BESYLATE
     Route: 065
  8. LOSARTAN POTASSIUM [Concomitant]
     Active Substance: LOSARTAN POTASSIUM
     Route: 065
  9. HERBALS [Concomitant]
     Active Substance: HERBALS
     Route: 065
  10. Capox [Concomitant]
     Indication: Rectosigmoid cancer stage IV
     Dosage: UNK (THREE COURSES)
     Route: 065
  11. PRAVASTATIN SODIUM [Concomitant]
     Active Substance: PRAVASTATIN SODIUM
     Route: 065

REACTIONS (11)
  - Anastomotic leak [Recovering/Resolving]
  - Failure to anastomose [Recovering/Resolving]
  - Rectal perforation [Recovering/Resolving]
  - Renal impairment [Unknown]
  - Anaemia [Unknown]
  - Coagulation factor decreased [Unknown]
  - Malnutrition [Unknown]
  - Procedural haemorrhage [Unknown]
  - Femoral neck fracture [Unknown]
  - Bacteraemia [Unknown]
  - Urinary tract infection [Unknown]
